FAERS Safety Report 9636173 (Version 2)
Quarter: 2014Q2

REPORT INFORMATION
  Report Type: Spontaneous
  Country: AT (occurrence: AT)
  Receive Date: 20131021
  Receipt Date: 20140512
  Transmission Date: 20141212
  Serious: Yes (Other)
  Sender: FDA-Public Use
  Company Number: AT-PFIZER INC-2013294808

PATIENT
  Age: 25 Year
  Sex: Male
  Weight: 93 kg

DRUGS (18)
  1. XANOR [Suspect]
     Dosage: 2 MG, 1X/DAY
     Dates: start: 20130621, end: 20130621
  2. XANOR [Suspect]
     Dosage: 2.5 MG, 1X/DAY
     Dates: start: 20130622, end: 20130623
  3. XANOR [Suspect]
     Dosage: 3 MG, 1X/DAY
     Dates: start: 20130624, end: 20130628
  4. XANOR [Suspect]
     Dosage: 2.5 MG, 1X/DAY
     Dates: start: 20130629, end: 20130703
  5. XANOR [Suspect]
     Dosage: 0.5 MG, 1X/DAY
     Dates: start: 20130704
  6. TEMESTA [Suspect]
     Dosage: 5 MG, 1X/DAY
     Dates: start: 20130705, end: 20130727
  7. TEMESTA [Suspect]
     Dosage: UNK
  8. CYMBALTA [Suspect]
     Dosage: 120 MG, 1X/DAY
     Dates: start: 201303, end: 20130613
  9. CYMBALTA [Suspect]
     Dosage: 150 MG, 1X/DAY
     Dates: start: 20130614, end: 20130630
  10. CYMBALTA [Suspect]
     Dosage: 120 MG, 1X/DAY
     Dates: start: 20130701, end: 20130711
  11. CYMBALTA [Suspect]
     Dosage: 60 MG, UNK
     Dates: start: 20130712, end: 20130712
  12. ABILIFY [Suspect]
     Dosage: 10 MG, 1X/DAY
     Dates: start: 201304, end: 20130628
  13. ABILIFY [Suspect]
     Dosage: 15 MG, 1X/DAY
     Dates: start: 20130629, end: 20130630
  14. ABILIFY [Suspect]
     Dosage: 20 MG, 1X/DAY
     Dates: start: 20130701
  15. ABILIFY [Suspect]
     Dosage: 15 MG, UNK
     Dates: start: 20130702
  16. ZYPREXA [Concomitant]
     Dosage: 15 MG, 1X/DAY
     Dates: start: 201303, end: 20130619
  17. ZYPREXA [Concomitant]
     Dosage: 10 MG, 1X/DAY
     Dates: start: 20130620, end: 20130623
  18. ZYPREXA [Concomitant]
     Dosage: 5 MG, 1X/DAY
     Dates: start: 20130624, end: 20130625

REACTIONS (1)
  - Dysuria [Recovered/Resolved]
